FAERS Safety Report 8900847 (Version 2)
Quarter: 2012Q4

REPORT INFORMATION
  Report Type: 
  Country: ES (occurrence: ES)
  Receive Date: 20121109
  Receipt Date: 20121114
  Transmission Date: 20130627
  Serious: Yes (Hospitalization)
  Sender: FDA-Public Use
  Company Number: ES-JNJFOC-20121102465

PATIENT
  Age: 42 Year
  Sex: Female
  Weight: 96 kg

DRUGS (3)
  1. REMICADE [Suspect]
     Indication: PSORIATIC ARTHROPATHY
     Route: 042
     Dates: start: 201104, end: 20120914
  2. REMICADE [Suspect]
     Indication: PSORIASIS
     Route: 042
     Dates: start: 201104, end: 20120914
  3. LEFLUNOMIDE [Concomitant]
     Indication: PRODUCT USED FOR UNKNOWN INDICATION
     Route: 065
     Dates: start: 20120926

REACTIONS (1)
  - Tuberculosis [Recovering/Resolving]
